FAERS Safety Report 6110749-0 (Version None)
Quarter: 2009Q1

REPORT INFORMATION
  Report Type: 
  Country: None (occurrence: None)
  Receive Date: 20090309
  Receipt Date: 20090220
  Transmission Date: 20090719
  Serious: Yes (Hospitalization)
  Sender: FDA-Public Use
  Company Number: 430024M08USA

PATIENT
  Age: 69 Year
  Sex: Male

DRUGS (24)
  1. NOVANTRONE [Suspect]
     Indication: PROSTATE CANCER
     Dosage: 18 MG, 1 IN 3 WEEKS, INTRAVENOUS (NOT OTHERWISE SPECIFIED)
     Route: 042
     Dates: start: 20081014, end: 20081224
  2. CETUXIMAB (CETUXIMAB) [Suspect]
     Indication: PROSTATE CANCER
     Dosage: 500 MG, 1 IN 1 WEEKS, INTRAVENOUS (NOT OTHERWISE SPECIFIED)
     Route: 042
     Dates: start: 20081014, end: 20081224
  3. ALLEGRA [Concomitant]
  4. LIPITOR [Concomitant]
  5. MELOXICAN (MELOXICAN) [Concomitant]
  6. ALLOPURINOL [Concomitant]
  7. PENICILLIN (BENZYLPENICILLIN SODIUM) [Concomitant]
  8. EFFEXOR [Concomitant]
  9. REGLAN [Concomitant]
  10. LUPRON [Concomitant]
  11. ZOFRAN [Concomitant]
  12. RITALIN [Concomitant]
  13. SINGULAIR [Concomitant]
  14. METHADONE HCL [Concomitant]
  15. DILAUDID [Concomitant]
  16. VITAMIN D AND CALCIUM (CALCIUM WITH VITAMIN D) [Concomitant]
  17. VITAMIN E [Concomitant]
  18. IRON SUPPLEMENT (IRON) [Concomitant]
  19. FENTANYL [Concomitant]
  20. NEUPOGEN [Concomitant]
  21. HYDROMORPHONE HCL [Concomitant]
  22. PEN VK (PHENOXYMETHYLPENICILLIN POTASSIUM) [Concomitant]
  23. LASIX [Concomitant]
  24. POTASSIUM (POTASSIUM) [Concomitant]

REACTIONS (19)
  - ACTIVATED PARTIAL THROMBOPLASTIN TIME PROLONGED [None]
  - ASTHENIA [None]
  - BLOOD URINE PRESENT [None]
  - COGNITIVE DISORDER [None]
  - CONFUSIONAL STATE [None]
  - HAPTOGLOBIN INCREASED [None]
  - HEART RATE DECREASED [None]
  - HEART RATE IRREGULAR [None]
  - HYPOALBUMINAEMIA [None]
  - INTERNATIONAL NORMALISED RATIO DECREASED [None]
  - LYMPHADENECTOMY [None]
  - METASTASES TO MENINGES [None]
  - PANCYTOPENIA [None]
  - PLEURAL EFFUSION [None]
  - PROTHROMBIN TIME PROLONGED [None]
  - RED BLOOD CELLS URINE POSITIVE [None]
  - URINARY SEDIMENT PRESENT [None]
  - VENTRICULAR EXTRASYSTOLES [None]
  - WHITE BLOOD CELLS URINE POSITIVE [None]
